FAERS Safety Report 4288409-0 (Version None)
Quarter: 2004Q1

REPORT INFORMATION
  Report Type: 
  Country: None (occurrence: None)
  Receive Date: 20040209
  Receipt Date: 20030929
  Transmission Date: 20041129
  Serious: No
  Sender: FDA-Public Use
  Company Number: US-GLAXOSMITHKLINE-A0427880A

PATIENT
  Age: 86 Year
  Sex: Female

DRUGS (4)
  1. PAXIL [Suspect]
     Dosage: 20MG PER DAY
     Route: 048
  2. AMBIEN [Concomitant]
  3. CENTRUM [Concomitant]
  4. VITAMIN B COMPLEX CAP [Concomitant]

REACTIONS (8)
  - ANXIETY [None]
  - DRY MOUTH [None]
  - FATIGUE [None]
  - HOT FLUSH [None]
  - INSOMNIA [None]
  - NEGATIVE THOUGHTS [None]
  - NERVOUSNESS [None]
  - TENSION [None]
